FAERS Safety Report 18393326 (Version 2)
Quarter: 2021Q1

REPORT INFORMATION
  Report Type: Spontaneous
  Country: US (occurrence: US)
  Receive Date: 20201016
  Receipt Date: 20210128
  Transmission Date: 20210419
  Serious: No
  Sender: FDA-Public Use
  Company Number: US-BIOGEN-2020BI00935939

PATIENT
  Age: 52 Year
  Sex: Female

DRUGS (1)
  1. TYSABRI [Suspect]
     Active Substance: NATALIZUMAB
     Indication: MULTIPLE SCLEROSIS
     Dosage: 300 MILLIGRAM/15ML IN 100 ML NS
     Route: 065
     Dates: start: 20201009

REACTIONS (2)
  - Headache [Unknown]
  - Contusion [Unknown]

NARRATIVE: CASE EVENT DATE: 202010
